FAERS Safety Report 23062435 (Version 3)
Quarter: 2024Q1

REPORT INFORMATION
  Report Type: Spontaneous
  Country: US (occurrence: US)
  Receive Date: 20231013
  Receipt Date: 20240321
  Transmission Date: 20240409
  Serious: No
  Sender: FDA-Public Use
  Company Number: US-PFIZER INC-PV202300165536

PATIENT
  Age: 68 Year
  Sex: Female

DRUGS (2)
  1. IBRANCE [Suspect]
     Active Substance: PALBOCICLIB
     Dosage: 125 MG/ TAKE ON DAYS 1-21 OF A 28-DAY CYCLE. TAKE WITH OR WITHOUT FOOD
     Route: 048
  2. IBRANCE [Suspect]
     Active Substance: PALBOCICLIB
     Dosage: 100 MG/ TAKE ON DAYS 1-21 OF A 28-DAY CYCLE. TAKE WITH OR WITHOUT FOOD

REACTIONS (6)
  - Blood test abnormal [Unknown]
  - Neoplasm recurrence [Not Recovered/Not Resolved]
  - Anxiety [Not Recovered/Not Resolved]
  - Memory impairment [Unknown]
  - Full blood count abnormal [Unknown]
  - Product prescribing issue [Unknown]
